FAERS Safety Report 22920674 (Version 3)
Quarter: 2023Q4

REPORT INFORMATION
  Report Type: Report from Study
  Country: US (occurrence: US)
  Receive Date: 20230908
  Receipt Date: 20231023
  Transmission Date: 20240110
  Serious: Yes (Other)
  Sender: FDA-Public Use
  Company Number: US-ABBVIE-5335242

PATIENT
  Sex: Male

DRUGS (3)
  1. SKYRIZI [Suspect]
     Active Substance: RISANKIZUMAB-RZAA
     Indication: Psoriasis
     Dosage: WEEK 0
     Route: 058
     Dates: start: 20220630, end: 20220630
  2. SKYRIZI [Suspect]
     Active Substance: RISANKIZUMAB-RZAA
     Dosage: WEEK 4
     Route: 058
     Dates: start: 20220727, end: 20220727
  3. SKYRIZI [Suspect]
     Active Substance: RISANKIZUMAB-RZAA
     Route: 058
     Dates: start: 20220810

REACTIONS (7)
  - Chronic obstructive pulmonary disease [Unknown]
  - Dry skin [Unknown]
  - Muscle atrophy [Unknown]
  - Respiratory disorder [Unknown]
  - Skin discolouration [Unknown]
  - Thinking abnormal [Unknown]
  - Skin exfoliation [Recovered/Resolved]
